FAERS Safety Report 5806770-X (Version None)
Quarter: 2008Q3

REPORT INFORMATION
  Report Type: 
  Country: None (occurrence: None)
  Receive Date: 20080709
  Receipt Date: 20080709
  Transmission Date: 20090109
  Serious: Yes (Hospitalization, Other)
  Sender: FDA-Public Use
  Company Number: None

PATIENT
  Age: 54 Year
  Sex: Female
  Weight: 62.1428 kg

DRUGS (1)
  1. LEVAQUIN [Suspect]
     Indication: OSTEOMYELITIS
     Dosage: 1   1

REACTIONS (11)
  - BACK PAIN [None]
  - BLOOD GLUCOSE INCREASED [None]
  - CONTUSION [None]
  - FATIGUE [None]
  - GINGIVAL BLEEDING [None]
  - HYPOGLYCAEMIA [None]
  - MALAISE [None]
  - MYODESOPSIA [None]
  - PAIN IN EXTREMITY [None]
  - PHOTOPSIA [None]
  - SKIN HAEMORRHAGE [None]
